FAERS Safety Report 4817274-5 (Version None)
Quarter: 2005Q4

REPORT INFORMATION
  Report Type: 
  Country: None (occurrence: None)
  Receive Date: 20051018
  Receipt Date: 20050706
  Transmission Date: 20060501
  Serious: Yes (Hospitalization, Other)
  Sender: FDA-Public Use
  Company Number: PHEH2005US03607

PATIENT
  Age: 62 Year
  Sex: Female

DRUGS (21)
  1. ZOMETA [Suspect]
     Indication: METASTASES TO BONE
     Dosage: 4 MG EVERY 4 WEEKS, INTRAVENOUS
     Route: 042
     Dates: start: 20041014, end: 20050106
  2. AVASTIN [Concomitant]
  3. IBUPROFEN [Concomitant]
  4. OXYCODONE [Concomitant]
  5. OXYCONTIN [Concomitant]
  6. DARVOCET-N 100 [Concomitant]
  7. ALPRAZOLAM [Concomitant]
  8. ARANESP [Concomitant]
  9. KEFLEX/USA/ (CEFALEXIN) [Concomitant]
  10. LEXAPRO [Concomitant]
  11. ASACOL [Concomitant]
  12. BENADRYL ^PFIZER WARNER-LAMBERT^ (DIPHENHYDRAMINE HYDROCHLORIDE) [Concomitant]
  13. OMEPRAZOLE [Concomitant]
  14. PREMPRO [Concomitant]
  15. WELLBUTRIN [Concomitant]
  16. LOPID [Concomitant]
  17. LIPITOR [Concomitant]
  18. DYAZIDE [Concomitant]
  19. VITAMIN E [Concomitant]
  20. IMIPRAMINE [Concomitant]
  21. LEVOTHYROXINE SODIUM [Concomitant]

REACTIONS (3)
  - BLOOD CREATININE INCREASED [None]
  - BLOOD UREA INCREASED [None]
  - RENAL FAILURE ACUTE [None]
